FAERS Safety Report 16316272 (Version 5)
Quarter: 2023Q1

REPORT INFORMATION
  Report Type: Spontaneous
  Country: US (occurrence: US)
  Receive Date: 20190515
  Receipt Date: 20230317
  Transmission Date: 20230417
  Serious: Yes (Hospitalization)
  Sender: FDA-Public Use
  Company Number: US-SA-2019SA128557

PATIENT
  Age: 73 Year
  Sex: Female

DRUGS (3)
  1. DUPIXENT [Suspect]
     Active Substance: DUPILUMAB
     Indication: Dermatitis atopic
     Dosage: 600 MG, 1X
     Route: 058
     Dates: start: 201904, end: 201904
  2. DUPIXENT [Suspect]
     Active Substance: DUPILUMAB
     Indication: Dermatitis
     Dosage: 300 MG, QOW
     Route: 058
     Dates: start: 2019
  3. DUPIXENT [Suspect]
     Active Substance: DUPILUMAB
     Indication: Prurigo

REACTIONS (5)
  - Upper limb fracture [Unknown]
  - Seasonal allergy [Unknown]
  - Sinusitis [Unknown]
  - Intentional dose omission [Unknown]
  - Product use in unapproved indication [Unknown]
